FAERS Safety Report 16584048 (Version 1)
Quarter: 2019Q3

REPORT INFORMATION
  Report Type: Spontaneous
  Country: US (occurrence: US)
  Receive Date: 20190603
  Receipt Date: 20190603
  Transmission Date: 20191004
  Serious: Yes (Other)
  Sender: FDA-Public Use
  Company Number: None

PATIENT
  Age: 76 Year
  Sex: Female

DRUGS (14)
  1. ATORVASTATIN [Concomitant]
     Active Substance: ATORVASTATIN
  2. BUPROPION. [Concomitant]
     Active Substance: BUPROPION
  3. CENTRUM SILVER [Concomitant]
     Active Substance: MINERALS\VITAMINS
  4. LEVOTHYROXINE. [Concomitant]
     Active Substance: LEVOTHYROXINE
  5. HUMULIN N [Concomitant]
     Active Substance: INSULIN HUMAN
  6. WARFARIN [Concomitant]
     Active Substance: WARFARIN
  7. GLIPIZIDE. [Concomitant]
     Active Substance: GLIPIZIDE
  8. K-TAB [Concomitant]
     Active Substance: POTASSIUM CHLORIDE
  9. LORATADINE. [Concomitant]
     Active Substance: LORATADINE
  10. MELATONIN [Concomitant]
     Active Substance: MELATONIN
  11. ADEMPAS [Suspect]
     Active Substance: RIOCIGUAT
     Indication: PULMONARY HYPERTENSION
     Route: 048
     Dates: start: 201810
  12. TYLENOL [Concomitant]
     Active Substance: ACETAMINOPHEN
  13. NYSTATIN LOP POWDER [Concomitant]
  14. LOSARTAN. [Concomitant]
     Active Substance: LOSARTAN

REACTIONS (4)
  - Abdominal pain lower [None]
  - Chills [None]
  - Pyrexia [None]
  - Vomiting [None]

NARRATIVE: CASE EVENT DATE: 20190512
